FAERS Safety Report 14552559 (Version 1)
Quarter: 2018Q1

REPORT INFORMATION
  Report Type: Spontaneous
  Country: US (occurrence: US)
  Receive Date: 20180220
  Receipt Date: 20180220
  Transmission Date: 20180509
  Serious: No
  Sender: FDA-Public Use
  Company Number: US-IPSEN BIOPHARMACEUTICALS, INC.-2017-12705

PATIENT
  Age: 50 Year
  Sex: Female

DRUGS (6)
  1. DYSPORT [Suspect]
     Active Substance: ABOBOTULINUMTOXINA
     Indication: SKIN WRINKLING
  2. DYSPORT [Suspect]
     Active Substance: ABOBOTULINUMTOXINA
     Indication: OFF LABEL USE
  3. DYSPORT [Suspect]
     Active Substance: ABOBOTULINUMTOXINA
     Indication: SKIN WRINKLING
     Dosage: 150 UNITS
     Route: 065
     Dates: start: 20170619, end: 20170619
  4. DYSPORT [Suspect]
     Active Substance: ABOBOTULINUMTOXINA
     Indication: SKIN WRINKLING
  5. VOLUMA [Suspect]
     Active Substance: UNSPECIFIED INGREDIENT
     Indication: SKIN WRINKLING
     Dates: start: 20170706
  6. DYSPORT [Suspect]
     Active Substance: ABOBOTULINUMTOXINA
     Indication: SKIN WRINKLING
     Dosage: 140 UNITS
     Route: 065
     Dates: start: 201709, end: 201709

REACTIONS (7)
  - Neuropathy peripheral [Not Recovered/Not Resolved]
  - Epstein-Barr virus test positive [Not Recovered/Not Resolved]
  - Influenza like illness [Unknown]
  - Intentional product use issue [Unknown]
  - Gastritis [Not Recovered/Not Resolved]
  - Malaise [Unknown]
  - Dysgeusia [Not Recovered/Not Resolved]

NARRATIVE: CASE EVENT DATE: 201706
